FAERS Safety Report 5492561-9 (Version None)
Quarter: 2007Q4

REPORT INFORMATION
  Report Type: 
  Country: None (occurrence: None)
  Receive Date: 20071022
  Receipt Date: 20071012
  Transmission Date: 20080405
  Serious: Yes (Death)
  Sender: FDA-Public Use
  Company Number: JP-PFIZER INC-2007087012

PATIENT
  Age: 71 Year

DRUGS (2)
  1. DETRUSITOL LA [Suspect]
     Dosage: DAILY DOSE:2MG
     Route: 048
  2. HARNAL [Concomitant]
     Route: 048
     Dates: start: 20070703, end: 20070719

REACTIONS (2)
  - DEATH [None]
  - FALL [None]
